FAERS Safety Report 7940056-2 (Version None)
Quarter: 2011Q4

REPORT INFORMATION
  Report Type: 
  Country: None (occurrence: None)
  Receive Date: 20111125
  Receipt Date: 20111116
  Transmission Date: 20120403
  Serious: Yes (Disabling)
  Sender: FDA-Public Use
  Company Number: DE-SANOFI-AVENTIS-2011SA076151

PATIENT
  Age: 55 Year
  Sex: Female
  Weight: 75 kg

DRUGS (5)
  1. FLUOROURACIL [Suspect]
     Route: 042
  2. EPIRUBICIN [Suspect]
     Route: 042
  3. CYCLOPHOSPHAMIDE [Suspect]
     Route: 042
  4. TRASTUZUMAB [Suspect]
     Route: 058
     Dates: start: 20101027
  5. DOCETAXEL [Suspect]
     Route: 042

REACTIONS (1)
  - ENDOMETRIAL CANCER [None]
